FAERS Safety Report 22390409 (Version 2)
Quarter: 2023Q2

REPORT INFORMATION
  Report Type: Spontaneous
  Country: JP (occurrence: JP)
  Receive Date: 20230531
  Receipt Date: 20230605
  Transmission Date: 20230722
  Serious: Yes (Death, Life-Threatening, Other)
  Sender: FDA-Public Use
  Company Number: JP-PFIZER INC-PV202300095613

PATIENT
  Age: 9 Year
  Sex: Male

DRUGS (9)
  1. METHOTREXATE SODIUM [Suspect]
     Active Substance: METHOTREXATE SODIUM
     Indication: Acute lymphocytic leukaemia
     Dosage: UNK, HIGH DOSE
     Route: 037
  2. METHOTREXATE SODIUM [Suspect]
     Active Substance: METHOTREXATE SODIUM
     Indication: Nervous system disorder
     Dosage: UNK, HIGH DOSE
     Route: 042
  3. METHOTREXATE SODIUM [Suspect]
     Active Substance: METHOTREXATE SODIUM
     Indication: Leukaemia
  4. VINCRISTINE [Suspect]
     Active Substance: VINCRISTINE
     Indication: Acute lymphocytic leukaemia
     Dosage: 1.5 MG/M2
     Dates: start: 19890905
  5. PREDNISONE [Suspect]
     Active Substance: PREDNISONE
     Indication: Acute lymphocytic leukaemia
     Dosage: 60 MG/M2
     Dates: start: 19890905
  6. CYCLOPHOSPHAMIDE [Suspect]
     Active Substance: CYCLOPHOSPHAMIDE
     Indication: Acute lymphocytic leukaemia
     Dosage: 1200 MG/M2
     Dates: start: 19890905
  7. ADRIAMYCIN [Suspect]
     Active Substance: DOXORUBICIN HYDROCHLORIDE
     Indication: Acute lymphocytic leukaemia
     Dosage: 25 MG/M2
     Dates: start: 19890905
  8. ACYCLOVIR [Suspect]
     Active Substance: ACYCLOVIR
     Indication: Confusional state
     Dosage: UNK
     Dates: start: 19891006
  9. VIDARABINE [Suspect]
     Active Substance: VIDARABINE
     Indication: Confusional state
     Dosage: UNK
     Dates: start: 19891006

REACTIONS (1)
  - Wernicke^s encephalopathy [Fatal]
